FAERS Safety Report 24839616 (Version 1)
Quarter: 2025Q1

REPORT INFORMATION
  Report Type: Report from Study
  Country: ZA (occurrence: ZA)
  Receive Date: 20250114
  Receipt Date: 20250114
  Transmission Date: 20250409
  Serious: Yes (Other)
  Sender: ALEXION PHARMACEUTICALS
  Company Number: ZA-AstraZeneca-CH-00781645A

PATIENT
  Age: 82 Year

DRUGS (14)
  1. BUDESONIDE\FORMOTEROL [Suspect]
     Active Substance: BUDESONIDE\FORMOTEROL
     Indication: Asthma
  2. BUDESONIDE\FORMOTEROL [Suspect]
     Active Substance: BUDESONIDE\FORMOTEROL
     Route: 055
  3. BUDESONIDE\FORMOTEROL [Suspect]
     Active Substance: BUDESONIDE\FORMOTEROL
  4. BUDESONIDE\FORMOTEROL [Suspect]
     Active Substance: BUDESONIDE\FORMOTEROL
     Route: 055
  5. TELMISARTAN [Concomitant]
     Active Substance: TELMISARTAN
     Indication: Hypertension
     Route: 048
  6. TELMISARTAN [Concomitant]
     Active Substance: TELMISARTAN
  7. FEXO [Concomitant]
     Indication: Hypersensitivity
     Route: 048
  8. FEXO [Concomitant]
  9. Omiflux [Concomitant]
     Indication: Gastrooesophageal reflux disease
     Route: 048
  10. Omiflux [Concomitant]
  11. AEROMIDE [Concomitant]
     Indication: Rhinitis allergic
     Route: 045
  12. AEROMIDE [Concomitant]
  13. AMITRIPTYLINE [Concomitant]
     Active Substance: AMITRIPTYLINE
     Indication: Depression
     Route: 048
  14. AMITRIPTYLINE [Concomitant]
     Active Substance: AMITRIPTYLINE

REACTIONS (1)
  - Gangrene [Unknown]
